FAERS Safety Report 7417515-4 (Version None)
Quarter: 2011Q2

REPORT INFORMATION
  Report Type: 
  Country: None (occurrence: None)
  Receive Date: 20110415
  Receipt Date: 20110404
  Transmission Date: 20111010
  Serious: Yes (Other)
  Sender: FDA-Public Use
  Company Number: US-SANOFI-AVENTIS-2011SA021928

PATIENT
  Sex: Female

DRUGS (2)
  1. DESMOPRESSIN ACETATE [Suspect]
     Route: 045
  2. DESMOPRESSIN ACETATE [Suspect]
     Route: 042

REACTIONS (3)
  - HYPERNATRAEMIA [None]
  - MUSCULAR WEAKNESS [None]
  - FACIAL PARESIS [None]
